FAERS Safety Report 7762652-8 (Version None)
Quarter: 2011Q3

REPORT INFORMATION
  Report Type: 
  Country: None (occurrence: None)
  Receive Date: 20110920
  Receipt Date: 20110909
  Transmission Date: 20111222
  Serious: Yes (Other)
  Sender: FDA-Public Use
  Company Number: CA-JNJFOC-20110605284

PATIENT
  Sex: Female
  Weight: 130 kg

DRUGS (2)
  1. REMICADE [Suspect]
     Indication: PSORIASIS
     Route: 042
  2. TYLENOL W/ CODEINE NO. 3 [Concomitant]
     Route: 065

REACTIONS (1)
  - LAPAROSCOPIC SURGERY [None]
